FAERS Safety Report 23130694 (Version 1)
Quarter: 2023Q4

REPORT INFORMATION
  Report Type: Spontaneous
  Country: DE (occurrence: DE)
  Receive Date: 20231031
  Receipt Date: 20231031
  Transmission Date: 20240110
  Serious: Yes (Death, Hospitalization, Other)
  Sender: FDA-Public Use
  Company Number: None

PATIENT
  Age: 73 Year
  Sex: Female
  Weight: 64 kg

DRUGS (29)
  1. MCP [Suspect]
     Active Substance: METOCLOPRAMIDE HYDROCHLORIDE
     Dosage: 1 DF, ONCE/SINGLE
     Route: 042
     Dates: start: 20010508, end: 20010508
  2. MCP [Suspect]
     Active Substance: METOCLOPRAMIDE HYDROCHLORIDE
     Indication: Nausea
     Dosage: 20 DROP, AMPU;E
     Route: 048
     Dates: start: 20010508, end: 20010508
  3. KALIUMKLORID [Concomitant]
     Indication: Hypokalaemia
     Route: 042
     Dates: start: 20010426, end: 20010501
  4. CARBIMAZOLE [Suspect]
     Active Substance: CARBIMAZOLE
     Indication: Hyperthyroidism
     Dosage: 5 MG, QD
     Route: 048
  5. JONOSTERIL [CALCIUM ACETATE;MAGNESIUM ACETATE TETRAHYDRATE;POTASSIUM A [Concomitant]
     Indication: Product used for unknown indication
     Dosage: 250 ML, QD
     Route: 042
     Dates: start: 20010415, end: 20010505
  6. PANTOZOL [Suspect]
     Active Substance: PANTOPRAZOLE SODIUM
     Indication: Product used for unknown indication
     Dosage: 20 MG, QD
     Route: 048
     Dates: start: 20010506
  7. PANTOZOL [Suspect]
     Active Substance: PANTOPRAZOLE SODIUM
     Dosage: 20 MG, QD
     Route: 048
     Dates: start: 20210415, end: 20210426
  8. DIMETHINDENE [Suspect]
     Active Substance: DIMETHINDENE
     Dosage: DOSAGE FORM: AMPOULES, 1 AMPULE
     Route: 048
     Dates: start: 20210511, end: 20210512
  9. DIMETHINDENE [Suspect]
     Active Substance: DIMETHINDENE
     Indication: Pruritus
     Dosage: 1 DF, QD
     Route: 048
     Dates: start: 200104
  10. HEPARIN [Suspect]
     Active Substance: HEPARIN SODIUM
     Indication: Thrombosis prophylaxis
     Dosage: 7500 IU, BID
     Route: 058
     Dates: start: 20010426, end: 20010512
  11. SODIUM CHLORIDE [Concomitant]
     Active Substance: SODIUM CHLORIDE
     Indication: Product used for unknown indication
     Dosage: 100 ML, ONCE/SINGLE
     Route: 042
     Dates: start: 20010508, end: 20010508
  12. CIPROFLOXACIN HYDROCHLORIDE [Suspect]
     Active Substance: CIPROFLOXACIN HYDROCHLORIDE
     Indication: Cholangitis
     Dosage: 1000 MG, QD
     Route: 048
     Dates: start: 20010415, end: 20010426
  13. CIPROFLOXACIN HYDROCHLORIDE [Suspect]
     Active Substance: CIPROFLOXACIN HYDROCHLORIDE
     Dosage: 1 DF, BID
     Route: 042
     Dates: start: 20010426, end: 20010501
  14. PROTAPHANE [Suspect]
     Active Substance: INSULIN HUMAN
     Indication: Product use in unapproved indication
     Dosage: 36 IU, QD(16IU-12IU-8IU)
     Route: 058
     Dates: start: 20010415, end: 20010426
  15. METRONIDAZOLE [Suspect]
     Active Substance: METRONIDAZOLE
     Indication: Cholangitis
     Dosage: 400 MG, BID
     Route: 048
     Dates: start: 20010415, end: 20010426
  16. METRONIDAZOLE [Suspect]
     Active Substance: METRONIDAZOLE
     Dosage: 800 MG, QD
     Route: 042
     Dates: start: 20010426, end: 20210501
  17. PENTAZOCINE [Suspect]
     Active Substance: PENTAZOCINE
     Indication: Pain
     Dosage: 1 DF, ONCE/SINGLE
     Route: 042
     Dates: start: 20010508, end: 20010508
  18. MEZLOCILLIN SODIUM [Suspect]
     Active Substance: MEZLOCILLIN SODIUM
     Indication: Cholangitis
     Dosage: 6 G, QD
     Route: 042
     Dates: start: 20010428, end: 20010501
  19. AMINO ACIDS\DEXTROSE\ELECTROLYTES NOS [Suspect]
     Active Substance: AMINO ACIDS\DEXTROSE\ELECTROLYTES NOS
     Indication: Parenteral nutrition
     Dosage: 500 ML
     Route: 042
     Dates: start: 20010415, end: 20010427
  20. POTASSIUM CHLORIDE [Concomitant]
     Active Substance: POTASSIUM CHLORIDE
     Indication: Hypokalaemia
     Dosage: 1 DF, QD
     Route: 048
     Dates: start: 20010506
  21. LOPERAMIDE [Suspect]
     Active Substance: LOPERAMIDE
     Indication: Diarrhoea
     Dosage: 1 DF, ONCE/SINGLE
     Route: 048
     Dates: start: 20010430, end: 20010430
  22. ETILEFRINE [Suspect]
     Active Substance: ETILEFRINE
     Indication: Hypotension
     Dosage: 30 DRP, ONCE/SINGLE
     Route: 048
     Dates: start: 20010508, end: 20010508
  23. OMEPRAZOLE [Suspect]
     Active Substance: OMEPRAZOLE
     Indication: Prophylaxis
     Dosage: 1 DF, QD
     Route: 042
     Dates: start: 20010426, end: 20010505
  24. OMEPRAZOLE [Suspect]
     Active Substance: OMEPRAZOLE
     Dosage: 1 DF, QD
     Route: 042
     Dates: start: 20010508, end: 20010508
  25. DEXTROSE [Suspect]
     Active Substance: DEXTROSE\DEXTROSE MONOHYDRATE
     Indication: Parenteral nutrition
     Dosage: 500 MG, QD
     Route: 042
     Dates: start: 20010415, end: 20010505
  26. HYMECROMONE [Suspect]
     Active Substance: HYMECROMONE
     Indication: Cholelithiasis
     Dosage: 1 DF, QD
     Route: 042
     Dates: start: 20010510
  27. DIMENHYDRINATE [Suspect]
     Active Substance: DIMENHYDRINATE
     Indication: Nausea
     Dosage: 1 DF, ONCE/SINGLE
     Route: 042
     Dates: start: 20010508, end: 20010508
  28. PREDNISOLONE SODIUM SUCCINATE [Suspect]
     Active Substance: PREDNISOLONE SODIUM SUCCINATE
     Indication: Pruritus
     Dosage: 100 MG, QD
     Route: 042
     Dates: start: 20010511, end: 20010511
  29. ALDACTONE [Suspect]
     Active Substance: SPIRONOLACTONE
     Indication: Oedema
     Dosage: 100 MG, QD
     Route: 048
     Dates: start: 20010415, end: 20010425

REACTIONS (12)
  - Circulatory collapse [Fatal]
  - Cardiac arrest [Fatal]
  - Toxic epidermal necrolysis [Fatal]
  - Stevens-Johnson syndrome [Fatal]
  - Shock [Fatal]
  - Blister [Unknown]
  - Conjunctivitis [Unknown]
  - Lip erosion [Unknown]
  - Pruritus [Unknown]
  - Rash [Unknown]
  - Skin exfoliation [Unknown]
  - Skin lesion [Unknown]

NARRATIVE: CASE EVENT DATE: 20010511
